FAERS Safety Report 9187238 (Version 1)
Quarter: 2013Q1

REPORT INFORMATION
  Report Type: Spontaneous
  Country: US (occurrence: US)
  Receive Date: 20130325
  Receipt Date: 20130325
  Transmission Date: 20140127
  Serious: Yes (Other)
  Sender: FDA-Public Use
  Company Number: US-FRI-1000043617

PATIENT
  Age: 30 Year
  Sex: Female
  Weight: 85.45 kg

DRUGS (5)
  1. VIIBRYD [Suspect]
     Indication: DEPRESSION
     Dosage: 20 MG
     Route: 048
     Dates: start: 20120628, end: 20121029
  2. VIIBRYD [Suspect]
     Indication: ANXIETY
  3. VITAMIN B 12 [Concomitant]
     Indication: VITAMIN B12 DEFICIENCY
     Dosage: 0.1429 ML
  4. PROPRANOLOL [Concomitant]
     Indication: ANXIETY
  5. VALTREX [Concomitant]
     Indication: ORAL HERPES
     Dosage: 500 MG

REACTIONS (2)
  - Sleep paralysis [Recovered/Resolved]
  - Nightmare [Recovered/Resolved]
